FAERS Safety Report 9228974 (Version 1)
Quarter: 2013Q2

REPORT INFORMATION
  Report Type: Spontaneous
  Country: US (occurrence: US)
  Receive Date: 20130412
  Receipt Date: 20130412
  Transmission Date: 20140414
  Serious: No
  Sender: FDA-Public Use
  Company Number: US-PFIZER INC-2013083864

PATIENT
  Age: 65 Year
  Sex: Female

DRUGS (1)
  1. CALAN SR [Suspect]
     Indication: HYPERTENSION
     Dosage: 240 MG, 2X/DAY
     Route: 048

REACTIONS (1)
  - Drug intolerance [Unknown]
